FAERS Safety Report 4565083-7 (Version None)
Quarter: 2005Q1

REPORT INFORMATION
  Report Type: 
  Country: None (occurrence: None)
  Receive Date: 20050118
  Receipt Date: 20040603
  Transmission Date: 20050727
  Serious: Yes (Hospitalization)
  Sender: FDA-Public Use
  Company Number: HQWYE259104JUN04

PATIENT
  Age: 62 Year
  Sex: Female
  Weight: 68.1 kg

DRUGS (2)
  1. PREMPRO [Suspect]
     Indication: HOT FLUSH
     Dosage: 0.625 MG/2.5 MG DAILY, ORAL
     Route: 048
     Dates: start: 19920101, end: 20040401
  2. VERAPAMIL [Concomitant]

REACTIONS (1)
  - CEREBROVASCULAR ACCIDENT [None]
